FAERS Safety Report 7828211-3 (Version None)
Quarter: 2011Q4

REPORT INFORMATION
  Report Type: 
  Country: None (occurrence: None)
  Receive Date: 20111018
  Receipt Date: 20111010
  Transmission Date: 20120403
  Serious: Yes (Hospitalization)
  Sender: FDA-Public Use
  Company Number: TPA2011A06428

PATIENT
  Age: 86 Year
  Sex: Male
  Weight: 95.2554 kg

DRUGS (1)
  1. PREVPAC [Suspect]
     Indication: HELICOBACTER INFECTION
     Dosage: 2 IN 1 D
     Dates: start: 20110927, end: 20111003

REACTIONS (4)
  - DISORIENTATION [None]
  - DIZZINESS [None]
  - DIARRHOEA [None]
  - FALL [None]
